FAERS Safety Report 16715791 (Version 1)
Quarter: 2019Q4

REPORT INFORMATION
  Report Type: Spontaneous
  Country: US (occurrence: US)
  Receive Date: 20190816
  Receipt Date: 20190816
  Transmission Date: 20200122
  Serious: Yes (Hospitalization, Disabling)
  Sender: FDA-Public Use
  Company Number: None

PATIENT
  Age: 28 Year
  Sex: Male
  Weight: 78.75 kg

DRUGS (1)
  1. PROPECIA [Suspect]
     Active Substance: FINASTERIDE
     Indication: ANDROGENETIC ALOPECIA
     Dosage: ?          QUANTITY:1 TABLET(S);?
     Route: 048
     Dates: start: 20140801, end: 20140918

REACTIONS (10)
  - Cognitive disorder [None]
  - Fatigue [None]
  - Weight increased [None]
  - Visual impairment [None]
  - Anxiety [None]
  - Muscle atrophy [None]
  - Sexual dysfunction [None]
  - Pain [None]
  - Lethargy [None]
  - Depression [None]

NARRATIVE: CASE EVENT DATE: 20141010
